FAERS Safety Report 5664802-6 (Version None)
Quarter: 2008Q1

REPORT INFORMATION
  Report Type: 
  Country: None (occurrence: None)
  Receive Date: 20080314
  Receipt Date: 20080303
  Transmission Date: 20080703
  Serious: Yes (Hospitalization)
  Sender: FDA-Public Use
  Company Number: US-BAXTER-2008BH002168

PATIENT
  Age: 55 Year
  Sex: Male

DRUGS (2)
  1. HEPARIN SODIUM [Suspect]
     Indication: PHOTOPHERESIS
     Route: 065
     Dates: start: 20080124, end: 20080124
  2. HEPARIN SODIUM [Suspect]
     Route: 065
     Dates: start: 20080204, end: 20080204

REACTIONS (10)
  - BLOOD PRESSURE DECREASED [None]
  - DEFAECATION URGENCY [None]
  - DISORIENTATION [None]
  - DIZZINESS [None]
  - HEART RATE INCREASED [None]
  - NAUSEA [None]
  - PYREXIA [None]
  - STOMACH DISCOMFORT [None]
  - UNRESPONSIVE TO STIMULI [None]
  - VOMITING [None]
